FAERS Safety Report 20824745 (Version 2)
Quarter: 2022Q3

REPORT INFORMATION
  Report Type: Spontaneous
  Country: US (occurrence: US)
  Receive Date: 20220513
  Receipt Date: 20220706
  Transmission Date: 20221027
  Serious: No
  Sender: FDA-Public Use
  Company Number: US-JNJFOC-20220519646

PATIENT
  Age: 20 Year
  Sex: Female

DRUGS (2)
  1. CONCERTA [Suspect]
     Active Substance: METHYLPHENIDATE HYDROCHLORIDE
     Indication: Product used for unknown indication
     Route: 065
  2. CLARITIN [Concomitant]
     Active Substance: LORATADINE
     Indication: Multiple allergies
     Route: 048

REACTIONS (4)
  - Drug intolerance [Recovered/Resolved]
  - Crying [Recovered/Resolved]
  - Underweight [Recovered/Resolved]
  - Decreased appetite [Recovered/Resolved]
